FAERS Safety Report 7921129-7 (Version None)
Quarter: 2011Q4

REPORT INFORMATION
  Report Type: 
  Country: None (occurrence: None)
  Receive Date: 20111117
  Receipt Date: 20111109
  Transmission Date: 20120403
  Serious: Yes (Hospitalization)
  Sender: FDA-Public Use
  Company Number: PHHY2011IT098923

PATIENT
  Sex: Female

DRUGS (4)
  1. ATENOLOL [Suspect]
     Route: 065
  2. RAMIPRIL [Suspect]
  3. SIMVASTATIN [Suspect]
  4. CLOPIDOGREL [Suspect]

REACTIONS (3)
  - PRURITUS [None]
  - PRODUCT SUBSTITUTION ISSUE [None]
  - RASH MACULO-PAPULAR [None]
